FAERS Safety Report 5782029-4 (Version None)
Quarter: 2008Q2

REPORT INFORMATION
  Report Type: 
  Country: None (occurrence: None)
  Receive Date: 20080618
  Receipt Date: 20080605
  Transmission Date: 20081010
  Serious: Yes (Hospitalization)
  Sender: FDA-Public Use
  Company Number: 2008AL006456

PATIENT
  Age: 75 Year
  Sex: Female
  Weight: 50 kg

DRUGS (6)
  1. METFORMIN HYDROCHLORIDE [Suspect]
     Dosage: 500 MG; HS; PO
     Route: 048
     Dates: start: 20000101
  2. LASOFOXIFENE [Concomitant]
  3. GLIBENCLAMIDE [Concomitant]
  4. OSCAL [Concomitant]
  5. AMLODIPINE [Concomitant]
  6. ASPIRIN [Concomitant]

REACTIONS (14)
  - ALTERED STATE OF CONSCIOUSNESS [None]
  - BLOOD PHOSPHORUS INCREASED [None]
  - BLOOD POTASSIUM DECREASED [None]
  - BLOOD PRESSURE SYSTOLIC INCREASED [None]
  - BLOOD SODIUM DECREASED [None]
  - FOAMING AT MOUTH [None]
  - GLUCOSE TOLERANCE TEST ABNORMAL [None]
  - HAEMOGLOBIN DECREASED [None]
  - HYPOGLYCAEMIA [None]
  - LOSS OF CONSCIOUSNESS [None]
  - ORAL INTAKE REDUCED [None]
  - TONIC CONVULSION [None]
  - TREMOR [None]
  - VOMITING [None]
